FAERS Safety Report 16343944 (Version 2)
Quarter: 2019Q2

REPORT INFORMATION
  Report Type: Report from Study
  Country: US (occurrence: US)
  Receive Date: 20190522
  Receipt Date: 20190603
  Transmission Date: 20190711
  Serious: Yes (Death, Other)
  Sender: FDA-Public Use
  Company Number: US-GILEAD-2019-0409174

PATIENT
  Age: 42 Year
  Sex: Female
  Weight: 90.8 kg

DRUGS (9)
  1. AMBRISENTAN [Suspect]
     Active Substance: AMBRISENTAN
     Indication: PULMONARY ARTERIAL HYPERTENSION
     Dosage: 10 MG, QD
     Route: 048
     Dates: start: 20190226, end: 20190521
  2. ULORIC [Concomitant]
     Active Substance: FEBUXOSTAT
  3. SILDENAFIL. [Concomitant]
     Active Substance: SILDENAFIL
     Dosage: 40 MG
     Route: 048
  4. PANTOPRAZOLE [Concomitant]
     Active Substance: PANTOPRAZOLE
  5. TREPROSTINIL. [Concomitant]
     Active Substance: TREPROSTINIL
     Dosage: 13 UNK
  6. TORSEMIDE. [Concomitant]
     Active Substance: TORSEMIDE
  7. SPIRONOLACTONE. [Concomitant]
     Active Substance: SPIRONOLACTONE
  8. LEVOTHYROXINE. [Concomitant]
     Active Substance: LEVOTHYROXINE
  9. METOLAZONE. [Concomitant]
     Active Substance: METOLAZONE

REACTIONS (1)
  - Pulmonary hypertension [Fatal]
